FAERS Safety Report 5934305-X (Version None)
Quarter: 2008Q4

REPORT INFORMATION
  Report Type: 
  Country: None (occurrence: None)
  Receive Date: 20081029
  Receipt Date: 20081020
  Transmission Date: 20090506
  Serious: Yes (Hospitalization)
  Sender: FDA-Public Use
  Company Number: PHHY2008FR23307

PATIENT
  Sex: Male
  Weight: 62 kg

DRUGS (7)
  1. EXFORGE [Suspect]
     Indication: HYPERTENSION
     Dosage: UNK
     Dates: start: 20080822
  2. ELISOR [Concomitant]
     Dosage: 20 MG, QD
     Route: 048
     Dates: start: 20020101
  3. OROCAL D3 [Concomitant]
     Dosage: 1 DF, QD
     Route: 048
     Dates: start: 20050901
  4. PREVISCAN [Concomitant]
     Dosage: 10 MG, QD
     Route: 048
     Dates: start: 20070901
  5. ZYLORIC [Concomitant]
     Dosage: 200 MG, QD
     Dates: start: 19960501
  6. LOPRESSOR [Concomitant]
     Dosage: 200 MG, QD
     Route: 048
     Dates: start: 20080501
  7. LEVOTHYROX [Concomitant]
     Dosage: 37.5 MG, QD
     Dates: start: 20000201

REACTIONS (7)
  - BRADYCARDIA [None]
  - HYPERKALAEMIA [None]
  - LOSS OF CONSCIOUSNESS [None]
  - MALAISE [None]
  - NAUSEA [None]
  - RENAL FAILURE ACUTE [None]
  - VOMITING [None]
